FAERS Safety Report 20031008 (Version 6)
Quarter: 2023Q4

REPORT INFORMATION
  Report Type: Report from Study
  Country: JP (occurrence: JP)
  Receive Date: 20211103
  Receipt Date: 20231019
  Transmission Date: 20240109
  Serious: Yes (Other)
  Sender: FDA-Public Use
  Company Number: JP-MYLANLABS-2021M1077755

PATIENT
  Age: 24 Year
  Sex: Female
  Weight: 42 kg

DRUGS (24)
  1. CYSTEAMINE [Suspect]
     Active Substance: CYSTEAMINE
     Indication: Cystinosis
     Dosage: 450 MILLIGRAM, QID, AFTER MEALS AND BEFORE BEDTIME
     Route: 048
     Dates: start: 20141008
  2. PROGRAF [Suspect]
     Active Substance: TACROLIMUS
     Indication: Product used for unknown indication
     Dosage: 6.0 MILLIGRAM, QD
     Route: 048
     Dates: start: 20200110, end: 20211007
  3. PROGRAF [Suspect]
     Active Substance: TACROLIMUS
     Dosage: 7.0 MILLIGRAM, QD
     Route: 048
     Dates: start: 20211008, end: 20211216
  4. PROGRAF [Suspect]
     Active Substance: TACROLIMUS
     Dosage: 8 MILLIGRAM, QD
     Route: 048
     Dates: start: 20211217
  5. LEVOTHYROXINE SODIUM [Concomitant]
     Active Substance: LEVOTHYROXINE SODIUM
     Indication: Product used for unknown indication
     Dosage: 125 MICROGRAM, QD
     Route: 048
     Dates: start: 20190315
  6. CELLCEPT [Concomitant]
     Active Substance: MYCOPHENOLATE MOFETIL
     Indication: Product used for unknown indication
     Dosage: 500 MILLIGRAM, QD
     Route: 048
     Dates: start: 20171215
  7. APIDRA [Concomitant]
     Active Substance: INSULIN GLULISINE
     Indication: Product used for unknown indication
     Dosage: 18 DOSAGE FORM, QD
     Route: 058
     Dates: start: 20200925, end: 20210520
  8. APIDRA [Concomitant]
     Active Substance: INSULIN GLULISINE
     Dosage: 24 DOSAGE FORM, QD
     Route: 058
     Dates: start: 20210521, end: 20210624
  9. APIDRA [Concomitant]
     Active Substance: INSULIN GLULISINE
     Dosage: 30 DOSAGE FORM, QD
     Route: 058
     Dates: start: 20210625, end: 20210729
  10. APIDRA [Concomitant]
     Active Substance: INSULIN GLULISINE
     Dosage: 28 DOSAGE FORM, QD
     Route: 058
     Dates: start: 20210730, end: 20211216
  11. APIDRA [Concomitant]
     Active Substance: INSULIN GLULISINE
     Dosage: 32 DOSAGE FORM, QD
     Route: 058
     Dates: start: 20211217, end: 20220127
  12. APIDRA [Concomitant]
     Active Substance: INSULIN GLULISINE
     Dosage: 31 DOSAGE FORM, QD
     Route: 058
     Dates: start: 20220128, end: 20220317
  13. APIDRA [Concomitant]
     Active Substance: INSULIN GLULISINE
     Dosage: 18 DOSAGE FORM, QD
     Route: 058
     Dates: start: 20220318
  14. INSULIN GLARGINE [Concomitant]
     Active Substance: INSULIN GLARGINE
     Indication: Product used for unknown indication
     Dosage: 7 DOSAGE FORM, QD
     Route: 058
     Dates: start: 20170915, end: 20210520
  15. INSULIN GLARGINE [Concomitant]
     Active Substance: INSULIN GLARGINE
     Dosage: 8 DOSAGE FORM, QD
     Route: 058
     Dates: start: 20210521, end: 20210624
  16. INSULIN GLARGINE [Concomitant]
     Active Substance: INSULIN GLARGINE
     Dosage: 10 DOSAGE FORM, QD
     Route: 058
     Dates: start: 20210625, end: 20220317
  17. INSULIN GLARGINE [Concomitant]
     Active Substance: INSULIN GLARGINE
     Dosage: 6 DOSAGE FORM, QD
     Route: 058
     Dates: start: 20220318
  18. JANUVIA [Concomitant]
     Active Substance: SITAGLIPTIN PHOSPHATE
     Indication: Product used for unknown indication
     Dosage: 50 MILLIGRAM, QD
     Route: 048
     Dates: start: 20210625, end: 20211216
  19. METGLUCO [Concomitant]
     Active Substance: METFORMIN HYDROCHLORIDE
     Indication: Product used for unknown indication
     Dosage: 500 MILLIGRAM, QD
     Route: 048
     Dates: start: 20210903, end: 20211216
  20. METFORMIN HYDROCHLORIDE\VILDAGLIPTIN [Concomitant]
     Active Substance: METFORMIN HYDROCHLORIDE\VILDAGLIPTIN
     Indication: Product used for unknown indication
     Dosage: 2 DOSAGE FORM, QD
     Route: 048
     Dates: start: 20211217
  21. EPINASTINE HYDROCHLORIDE [Concomitant]
     Active Substance: EPINASTINE HYDROCHLORIDE
     Indication: Product used for unknown indication
     Dosage: BID, BINOCULAR, BOTH EYES
     Route: 047
     Dates: start: 20220322, end: 20230418
  22. BILASTINE [Concomitant]
     Active Substance: BILASTINE
     Indication: Product used for unknown indication
     Dosage: 20 MILLIGRAM, QD
     Route: 048
     Dates: start: 20230120
  23. RIPASUDIL HYDROCHLORIDE DIHYDRATE [Concomitant]
     Active Substance: RIPASUDIL HYDROCHLORIDE DIHYDRATE
     Indication: Product used for unknown indication
     Dosage: UNK, BID, BOTH EYES
     Route: 047
     Dates: start: 20210824, end: 20230418
  24. DAPAGLIFLOZIN [Concomitant]
     Active Substance: DAPAGLIFLOZIN
     Indication: Product used for unknown indication
     Dosage: 5 MILLIGRAM, QD
     Route: 048
     Dates: start: 20230819

REACTIONS (4)
  - Corneal degeneration [Unknown]
  - Arteriovenous fistula [Not Recovered/Not Resolved]
  - Oropharyngeal discomfort [Recovering/Resolving]
  - Hyperglycaemia [Recovering/Resolving]

NARRATIVE: CASE EVENT DATE: 20201030
